FAERS Safety Report 18534741 (Version 1)
Quarter: 2020Q4

REPORT INFORMATION
  Report Type: Spontaneous
  Country: US (occurrence: US)
  Receive Date: 20201123
  Receipt Date: 20201123
  Transmission Date: 20210114
  Serious: No
  Sender: FDA-Public Use
  Company Number: US-EMD SERONO-9198706

PATIENT
  Age: 33 Year
  Sex: Female

DRUGS (2)
  1. GONAL-F [Suspect]
     Active Substance: FOLLITROPIN
     Dosage: DOSE INCREASED
     Dates: start: 2020
  2. GONAL-F [Suspect]
     Active Substance: FOLLITROPIN
     Indication: IN VITRO FERTILISATION
     Dates: start: 202009

REACTIONS (3)
  - Blood oestrogen decreased [Unknown]
  - Therapy non-responder [Unknown]
  - Oestradiol decreased [Unknown]

NARRATIVE: CASE EVENT DATE: 2020
